FAERS Safety Report 12690915 (Version 1)
Quarter: 2016Q3

REPORT INFORMATION
  Report Type: Spontaneous
  Country: US (occurrence: US)
  Receive Date: 20160826
  Receipt Date: 20160826
  Transmission Date: 20161109
  Serious: Yes (Other)
  Sender: FDA-Public Use
  Company Number: US-ELI_LILLY_AND_COMPANY-US201608008421

PATIENT
  Age: 54 Year
  Sex: Female
  Weight: 147.85 kg

DRUGS (14)
  1. TRULICITY [Suspect]
     Active Substance: DULAGLUTIDE
     Indication: TYPE 2 DIABETES MELLITUS
     Dosage: 0.75 MG, WEEKLY (1/W)
     Dates: start: 20160131, end: 20160417
  2. XANAX [Concomitant]
     Active Substance: ALPRAZOLAM
  3. MAGNESIUM [Concomitant]
     Active Substance: MAGNESIUM
  4. RED YEAST RICE WITH PLANT STEROLS [Concomitant]
  5. VITAMIN D [Concomitant]
     Active Substance: CHOLECALCIFEROL
  6. FLUOXETINE [Concomitant]
     Active Substance: FLUOXETINE HYDROCHLORIDE
  7. OMPRAZOLE [Concomitant]
     Active Substance: OMEPRAZOLE
  8. BETA CAROTENE [Concomitant]
  9. BABY ASPIRIN [Concomitant]
     Active Substance: ASPIRIN
  10. LISINOPRIL. [Concomitant]
     Active Substance: LISINOPRIL
  11. BIOTIN [Concomitant]
     Active Substance: BIOTIN
  12. FOLIC ACID. [Concomitant]
     Active Substance: FOLIC ACID
  13. FLAXSEED [Concomitant]
     Active Substance: FLAX SEED
  14. FISH OIL [Concomitant]
     Active Substance: FISH OIL

REACTIONS (9)
  - Cognitive disorder [Unknown]
  - Fatigue [Unknown]
  - Depression [Unknown]
  - Blood glucose decreased [Unknown]
  - Mental impairment [Unknown]
  - Dyspnoea [Unknown]
  - Feeling abnormal [Unknown]
  - Palpitations [Not Recovered/Not Resolved]
  - Suicidal ideation [Unknown]
